FAERS Safety Report 8392262 (Version 2)
Quarter: 2015Q1

REPORT INFORMATION
  Report Type: Spontaneous
  Country: US (occurrence: None)
  Receive Date: 20120125
  Receipt Date: 20150226
  Transmission Date: 20150721
  Serious: Yes (Other)
  Sender: FDA-Public Use
  Company Number: TPA2012A00322

PATIENT
  Age: 62 Year
  Sex: Male
  Weight: 115.67 kg

DRUGS (6)
  1. AMLODIPINE [Suspect]
     Active Substance: AMLODIPINE BESYLATE
  2. ADVICOR (NICOTINIC ACID, LOVASTATIN) [Concomitant]
  3. ATENOLOL (ATENOLOL) [Suspect]
     Active Substance: ATENOLOL
  4. METFORMIN HYDROCHLORIDE (METFORMIN HYDROCHLORIDE) [Concomitant]
     Active Substance: METFORMIN HYDROCHLORIDE
  5. ACTOS [Suspect]
     Active Substance: PIOGLITAZONE HYDROCHLORIDE
     Indication: TYPE 2 DIABETES MELLITUS
     Dosage: 30 MG, PER ORAL
     Route: 048
     Dates: start: 2006, end: 2011
  6. BENAZEPRIL HCT (HYDROCHLOROTHIAZIDE, BENAZEPRIL HYDROCHLORIDE) [Concomitant]

REACTIONS (1)
  - Bladder cancer [None]
